FAERS Safety Report 25298626 (Version 1)
Quarter: 2025Q2

REPORT INFORMATION
  Report Type: Spontaneous
  Country: CN (occurrence: CN)
  Receive Date: 20250512
  Receipt Date: 20250512
  Transmission Date: 20250717
  Serious: Yes (Hospitalization)
  Sender: TEVA
  Company Number: CN-TEVA-VS-3329108

PATIENT
  Sex: Male

DRUGS (4)
  1. AUSTEDO [Suspect]
     Active Substance: DEUTETRABENAZINE
     Indication: Tardive dyskinesia
     Dosage: 1 TABLET IN THE MORNING AND 1 TABLET IN THE EVENING FROM THE BEGINNING OF MEDICATION TO NOW
     Route: 048
     Dates: start: 20250320, end: 20250501
  2. ZALEPLON [Suspect]
     Active Substance: ZALEPLON
     Indication: Insomnia
     Dosage: 1 TABLET IN THE EVENING
     Route: 048
     Dates: end: 20250501
  3. TRAZODONE [Suspect]
     Active Substance: TRAZODONE HYDROCHLORIDE
     Indication: Depression
     Dosage: 1.5 TABLETS IN THE EVENING (INCREASED TO 2 TABLETS IN THE LAST TWO DAYS)
     Route: 048
     Dates: end: 20250501
  4. DIAZEPAM [Suspect]
     Active Substance: DIAZEPAM
     Indication: Product used for unknown indication
     Dosage: 2 TABLETS IN THE EVENING
     Route: 065

REACTIONS (1)
  - Suicide attempt [Unknown]

NARRATIVE: CASE EVENT DATE: 20250501
